FAERS Safety Report 20264892 (Version 1)
Quarter: 2021Q4

REPORT INFORMATION
  Report Type: Spontaneous
  Country: US (occurrence: None)
  Receive Date: 20211230
  Receipt Date: 20211230
  Transmission Date: 20220303
  Serious: Yes (Death)
  Sender: FDA-Public Use
  Company Number: None

PATIENT
  Sex: Female

DRUGS (7)
  1. PROCRIT [Suspect]
     Active Substance: ERYTHROPOIETIN
     Indication: Anaemia
     Dosage: OTHER QUANTITY : 20000 UNIT/ML;?OTHER FREQUENCY : 3 TIMES A MONTH;?
     Route: 058
     Dates: start: 20210319
  2. AZATHIOPRINE [Concomitant]
     Active Substance: AZATHIOPRINE
  3. CINACALCET [Concomitant]
     Active Substance: CINACALCET
  4. HHMULIN N [Concomitant]
  5. HYDRALAZINE [Concomitant]
     Active Substance: HYDRALAZINE HYDROCHLORIDE
  6. OLMESA MEDOX [Concomitant]
  7. TORSEMIDE [Concomitant]
     Active Substance: TORSEMIDE

REACTIONS (1)
  - Death [None]
